FAERS Safety Report 5137548-0 (Version None)
Quarter: 2006Q4

REPORT INFORMATION
  Report Type: 
  Country: None (occurrence: None)
  Receive Date: 20061030
  Receipt Date: 20051118
  Transmission Date: 20070319
  Serious: No
  Sender: FDA-Public Use
  Company Number: US-GLAXOSMITHKLINE-A0582863A

PATIENT
  Sex: Female

DRUGS (6)
  1. ADVAIR HFA [Suspect]
     Dosage: 1PUFF TWICE PER DAY
     Route: 055
     Dates: start: 20051116
  2. PROZAC [Concomitant]
  3. KLONOPIN [Concomitant]
  4. DITROPAN XL [Concomitant]
  5. GEODON [Concomitant]
  6. AMBIEN [Concomitant]

REACTIONS (2)
  - CHEILITIS [None]
  - DRY MOUTH [None]
